FAERS Safety Report 4848617-4 (Version None)
Quarter: 2005Q4

REPORT INFORMATION
  Report Type: 
  Country: None (occurrence: None)
  Receive Date: 20051206
  Receipt Date: 20051124
  Transmission Date: 20060501
  Serious: Yes (Hospitalization)
  Sender: FDA-Public Use
  Company Number: 2005123648

PATIENT
  Age: 67 Year
  Sex: Female

DRUGS (7)
  1. AMLODIPINE [Suspect]
     Indication: ILL-DEFINED DISORDER
     Dosage: 5 MG (5 MG, 1 IN 1 D), ORAL
     Route: 048
     Dates: end: 20050510
  2. CLOPIDOGREL (CLOPIDOGREL) [Suspect]
     Indication: ILL-DEFINED DISORDER
     Dosage: 1 DF (1 IN 1 D), ORAL
     Route: 048
     Dates: end: 20050510
  3. FOSAMAX [Suspect]
     Indication: ILL-DEFINED DISORDER
     Dosage: 10 MG (10 MG, 1 IN 1 D), ORAL
     Route: 048
     Dates: start: 20050426, end: 20050510
  4. LEVOTHYROXINE SODIUM [Concomitant]
  5. HYDROCORTISONE SODIUM SUCCINATE [Concomitant]
  6. MEMANTINE HCL [Concomitant]
  7. OROCAL VITAMIN D (CALCIUM CARBONATE, COLECALCIFEROL) [Concomitant]

REACTIONS (12)
  - DENTAL ALVEOLAR ANOMALY [None]
  - FALL [None]
  - GINGIVITIS [None]
  - MALNUTRITION [None]
  - OSTEOLYSIS [None]
  - OSTEONECROSIS [None]
  - PHARYNGOLARYNGEAL PAIN [None]
  - PURULENT DISCHARGE [None]
  - PYREXIA [None]
  - TOOTH ABSCESS [None]
  - TOOTH EXTRACTION [None]
  - TOOTH INFECTION [None]
